FAERS Safety Report 4899085-8 (Version None)
Quarter: 2006Q1

REPORT INFORMATION
  Report Type: 
  Country: None (occurrence: None)
  Receive Date: 20060202
  Receipt Date: 20060125
  Transmission Date: 20060701
  Serious: Yes (Hospitalization)
  Sender: FDA-Public Use
  Company Number: US-AVENTIS-200611029US

PATIENT
  Sex: Male

DRUGS (4)
  1. LANTUS [Suspect]
     Indication: DIABETES MELLITUS NON-INSULIN-DEPENDENT
     Dosage: DOSE: 15 UNITS QAM AND 15 UNITS QPM
     Route: 058
  2. NOVOLOG [Concomitant]
     Dosage: DOSE: SLIDING SCALE
  3. LIPITOR [Concomitant]
     Dosage: DOSE: UNK
  4. DITROPAN XL [Concomitant]
     Dosage: DOSE: UNK

REACTIONS (5)
  - APHAGIA [None]
  - BALANCE DISORDER [None]
  - CEREBROVASCULAR ACCIDENT [None]
  - DYSARTHRIA [None]
  - HEMIPLEGIA [None]
